FAERS Safety Report 12553245 (Version 1)
Quarter: 2016Q3

REPORT INFORMATION
  Report Type: Spontaneous
  Country: JP (occurrence: JP)
  Receive Date: 20160713
  Receipt Date: 20160713
  Transmission Date: 20161109
  Serious: Yes (Other)
  Sender: FDA-Public Use
  Company Number: JP-PFIZER INC-2016335135

PATIENT
  Age: 75 Year
  Sex: Male

DRUGS (2)
  1. LYRICA [Suspect]
     Active Substance: PREGABALIN
     Indication: NEURITIS
     Dosage: UNK
     Route: 048
  2. LYRICA [Suspect]
     Active Substance: PREGABALIN
     Indication: HERPES ZOSTER

REACTIONS (7)
  - Hypersomnia [Unknown]
  - Muscular weakness [Unknown]
  - Gait disturbance [Unknown]
  - Abasia [Unknown]
  - Dysstasia [Unknown]
  - Rhabdomyolysis [Unknown]
  - Walking aid user [Unknown]
